FAERS Safety Report 19855884 (Version 1)
Quarter: 2021Q3

REPORT INFORMATION
  Report Type: Spontaneous
  Country: DE (occurrence: DE)
  Receive Date: 20210920
  Receipt Date: 20210920
  Transmission Date: 20211014
  Serious: Yes (Hospitalization)
  Sender: FDA-Public Use
  Company Number: DE-TEVA-2021-DE-1953385

PATIENT
  Age: 46 Year
  Sex: Female

DRUGS (3)
  1. PREDNISOLON [Suspect]
     Active Substance: PREDNISOLONE
     Dosage: 100 MG, SINGLE USE,
     Route: 048
  2. CANDESARTAN. [Concomitant]
     Active Substance: CANDESARTAN
     Dosage: 16 MILLIGRAM DAILY;  1?0?1?0
     Route: 048
  3. NITRENDIPIN [Concomitant]
     Active Substance: NITRENDIPINE
     Route: 048

REACTIONS (2)
  - Tachycardia [Unknown]
  - Panic reaction [Unknown]

NARRATIVE: CASE EVENT DATE: 20210619
